FAERS Safety Report 14874161 (Version 1)
Quarter: 2018Q2

REPORT INFORMATION
  Report Type: Spontaneous
  Country: GB (occurrence: GB)
  Receive Date: 20180510
  Receipt Date: 20180510
  Transmission Date: 20180711
  Serious: Yes (Hospitalization)
  Sender: FDA-Public Use
  Company Number: GB-PFIZER INC-2018190768

PATIENT
  Age: 88 Year
  Sex: Female

DRUGS (2)
  1. RAMIPRIL. [Suspect]
     Active Substance: RAMIPRIL
     Dosage: UNK
     Route: 048
     Dates: start: 2005
  2. FRUMIL [Suspect]
     Active Substance: AMILORIDE HYDROCHLORIDE\FUROSEMIDE
     Dosage: UNK
     Route: 065
     Dates: start: 2011

REACTIONS (2)
  - Hyperkalaemia [Unknown]
  - Fall [Unknown]

NARRATIVE: CASE EVENT DATE: 20171228
